FAERS Safety Report 25431501 (Version 1)
Quarter: 2025Q2

REPORT INFORMATION
  Report Type: Other
  Country: DE (occurrence: DE)
  Receive Date: 20250613
  Receipt Date: 20250613
  Transmission Date: 20250717
  Serious: Yes (Hospitalization)
  Sender: Integrated Therapeutic Solutions
  Company Number: DE-Integrated Therapeutic Solutions Inc.-2178449

PATIENT
  Age: 41 Year
  Sex: Female

DRUGS (1)
  1. PYLERA [Suspect]
     Active Substance: BISMUTH SUBCITRATE POTASSIUM\METRONIDAZOLE\TETRACYCLINE HYDROCHLORIDE
     Indication: Helicobacter infection
     Dates: start: 20241228, end: 20250114

REACTIONS (4)
  - Palpitations [Recovered/Resolved]
  - Pain [Recovered/Resolved]
  - Fatigue [Recovered/Resolved]
  - Hunger [Recovered/Resolved]

NARRATIVE: CASE EVENT DATE: 20241228
